FAERS Safety Report 21233847 (Version 1)
Quarter: 2022Q3

REPORT INFORMATION
  Report Type: Report from Study
  Country: AU (occurrence: AU)
  Receive Date: 20220819
  Receipt Date: 20220819
  Transmission Date: 20221027
  Serious: Yes (Hospitalization, Other)
  Sender: FDA-Public Use
  Company Number: AU-BAXTER-2022BAX017738

PATIENT
  Age: 2 Year
  Sex: Male
  Weight: 11.4 kg

DRUGS (19)
  1. CYCLOPHOSPHAMIDE [Suspect]
     Active Substance: CYCLOPHOSPHAMIDE
     Indication: Recurrent cancer
     Dosage: PAST DRUG
     Route: 042
     Dates: start: 20181018, end: 20190819
  2. CYCLOPHOSPHAMIDE [Suspect]
     Active Substance: CYCLOPHOSPHAMIDE
     Indication: Neuroblastoma
     Dosage: MAXIMUM OF 5 DAYS EVERY 21 DAYS (250 MG/M2,1 IN 1 D)
     Route: 042
     Dates: start: 20200509, end: 20200614
  3. DOXORUBICIN [Suspect]
     Active Substance: DOXORUBICIN
     Indication: Neuroblastoma
     Dosage: UNK
     Route: 065
     Dates: start: 20181018, end: 20190819
  4. MESNA [Suspect]
     Active Substance: MESNA
     Indication: Prophylaxis
     Dosage: FOR 5 DAYS WITH EACH CYCLE OF CYCLOPHOSPHAMIDE (30 MG, 4 IN 1 D)
     Route: 042
     Dates: start: 20200509, end: 20200614
  5. VENETOCLAX [Suspect]
     Active Substance: VENETOCLAX
     Indication: Recurrent cancer
     Dosage: 60 MG,1 IN 1 D, TABLET FOR ORAL SUSPENSION, NASOGASTRIC
     Route: 050
     Dates: start: 20200507, end: 20200507
  6. VENETOCLAX [Suspect]
     Active Substance: VENETOCLAX
     Dosage: 120 MG,1 IN 1 D, TABLET FOR ORAL SUSPENSION, NASOGASTRIC
     Route: 050
     Dates: start: 20200508, end: 20200619
  7. TOPOTECAN [Suspect]
     Active Substance: TOPOTECAN HYDROCHLORIDE
     Indication: Recurrent cancer
     Dosage: MAXIMUM OF 5 DAYS EVERY 21 DAYS (0.75 MG/M2,1 IN 1 D)
     Route: 042
     Dates: start: 20200509, end: 20200614
  8. ALLOPURINOL [Concomitant]
     Active Substance: ALLOPURINOL
     Indication: Prophylaxis
     Dosage: 150 MG (150 MG, 1 IN 1 D)
     Route: 042
     Dates: start: 20200507, end: 20200511
  9. ACYCLOVIR [Concomitant]
     Active Substance: ACYCLOVIR
     Indication: Infection prophylaxis
     Dosage: 200 MG (100 MG,2 IN 1 D), NASOGASTRIC
     Route: 050
     Dates: start: 20200408
  10. OXYCODONE [Concomitant]
     Active Substance: OXYCODONE
     Indication: Pain
     Dosage: 1 MG,1 AS REQUIRED, NASOGASTRIC
     Route: 050
     Dates: start: 20200507
  11. ACETAMINOPHEN [Concomitant]
     Active Substance: ACETAMINOPHEN
     Indication: Facial pain
     Dosage: 170 MG,1 AS REQUIRED, NASOGASTRIC
     Route: 050
     Dates: start: 20200324
  12. METOCLOPRAMIDE [Concomitant]
     Active Substance: METOCLOPRAMIDE
     Indication: Prophylaxis of nausea and vomiting
     Dosage: 1.5 MG,1 AS REQUIRED
     Route: 042
     Dates: start: 20200509
  13. ONDANSETRON [Concomitant]
     Active Substance: ONDANSETRON
     Indication: Prophylaxis of nausea and vomiting
     Dosage: 3 MG,1 AS REQUIRED
     Route: 042
     Dates: start: 20200430
  14. NILSTAT [Concomitant]
     Active Substance: NYSTATIN
     Indication: Antifungal prophylaxis
     Dosage: 4 ML (1 ML,4 IN 1 D)
     Route: 048
     Dates: start: 20200507
  15. SODIUM BICARBONATE [Concomitant]
     Active Substance: SODIUM BICARBONATE
     Indication: Drug therapy
     Dosage: 20 ML (5 ML,4 IN 1 D)
     Route: 048
     Dates: start: 20200507
  16. BACTRIM [Concomitant]
     Active Substance: SULFAMETHOXAZOLE\TRIMETHOPRIM
     Indication: Prophylaxis
     Dosage: 56 MG (28 MG,2 IN 1 D), NASOGASTRIC
     Route: 050
     Dates: start: 20200320
  17. HEPARIN SODIUM [Concomitant]
     Active Substance: HEPARIN SODIUM
     Indication: Prophylaxis
     Dosage: 5 0UI/5 ML (3 ML, 1 AS REQUIRED)
     Route: 042
     Dates: start: 20200507
  18. PEGFILGRASTIM [Concomitant]
     Active Substance: PEGFILGRASTIM
     Indication: Drug therapy
     Dosage: STAT (2.5 MG)
     Route: 042
     Dates: start: 20200514, end: 20200514
  19. IODINE;POTASSIUM IODIDE [Concomitant]
     Indication: Prophylaxis
     Dosage: 2 DROP (2 DROP,1 IN 1 D)
     Route: 048
     Dates: start: 20200508, end: 20200525

REACTIONS (4)
  - Facial pain [Not Recovered/Not Resolved]
  - Clostridial infection [Recovered/Resolved]
  - Febrile neutropenia [Recovered/Resolved]
  - Neutrophil count decreased [Recovered/Resolved]

NARRATIVE: CASE EVENT DATE: 20200518
